FAERS Safety Report 12603586 (Version 1)
Quarter: 2016Q3

REPORT INFORMATION
  Report Type: Spontaneous
  Country: KR (occurrence: KR)
  Receive Date: 20160728
  Receipt Date: 20160728
  Transmission Date: 20161109
  Serious: Yes (Other)
  Sender: FDA-Public Use
  Company Number: KR-KALEO, INC-2015SA169714

PATIENT
  Age: 67 Year
  Sex: Male

DRUGS (3)
  1. EPINEPHRINE 1:80,000 [Suspect]
     Active Substance: EPINEPHRINE
     Indication: NERVE BLOCK
     Dosage: ONCE
     Route: 058
  2. LOSARTAN. [Concomitant]
     Active Substance: LOSARTAN
     Indication: HYPERTENSION
     Route: 065
  3. LIDOCAINE HYDROCHLORIDE 2% [Suspect]
     Active Substance: LIDOCAINE HYDROCHLORIDE
     Indication: ANAESTHESIA
     Dosage: ONCE
     Route: 058

REACTIONS (5)
  - Optic ischaemic neuropathy [Recovering/Resolving]
  - Retinal artery occlusion [None]
  - Eye pain [Recovering/Resolving]
  - Vasospasm [None]
  - Visual acuity reduced [Recovering/Resolving]
